FAERS Safety Report 4340519-5 (Version None)
Quarter: 2004Q2

REPORT INFORMATION
  Report Type: 
  Country: None (occurrence: None)
  Receive Date: 20040414
  Receipt Date: 20040401
  Transmission Date: 20050107
  Serious: Yes (Hospitalization, Other)
  Sender: FDA-Public Use
  Company Number: 2004022294

PATIENT
  Sex: Male

DRUGS (4)
  1. ATARAX [Suspect]
     Indication: PRURITUS
     Dosage: 25 MG (DAILY), PLACENTAL
     Route: 064
     Dates: start: 20040224, end: 20040225
  2. SUFENTANIL CITRATE [Suspect]
     Indication: ANAESTHESIA
     Dosage: 2.5 MCG (DAILY), PLACENTAL
     Route: 064
     Dates: start: 20040227, end: 20040227
  3. MARCAIN SPINAL (BUPIVACAINE HYDROCHLORIDE, SODIUM CHLORIDE, SODIUM HYD [Suspect]
     Indication: ANAESTHESIA
     Dosage: 10 MG (DAILY), PLACENTAL
     Route: 064
     Dates: start: 20040227, end: 20040227
  4. EPHEDRINE (EPHEDRINE) [Concomitant]

REACTIONS (4)
  - CYANOSIS NEONATAL [None]
  - MATERNAL DRUGS AFFECTING FOETUS [None]
  - NEONATAL APNOEIC ATTACK [None]
  - OXYGEN SATURATION DECREASED [None]
